FAERS Safety Report 4420583-5 (Version None)
Quarter: 2004Q3

REPORT INFORMATION
  Report Type: 
  Country: None (occurrence: None)
  Receive Date: 20040809
  Receipt Date: 20040406
  Transmission Date: 20050211
  Serious: No
  Sender: FDA-Public Use
  Company Number: US-GLAXOSMITHKLINE-A0505970A

PATIENT
  Age: 75 Year
  Sex: Male

DRUGS (3)
  1. PAXIL CR [Suspect]
     Dosage: 25MG PER DAY
  2. LOPRESSOR [Concomitant]
  3. ALTACE [Concomitant]

REACTIONS (2)
  - HEADACHE [None]
  - SENSORY DISTURBANCE [None]
